FAERS Safety Report 12652425 (Version 2)
Quarter: 2016Q3

REPORT INFORMATION
  Report Type: Spontaneous
  Country: US (occurrence: US)
  Receive Date: 20160815
  Receipt Date: 20160901
  Transmission Date: 20161109
  Serious: No
  Sender: FDA-Public Use
  Company Number: US-PFIZER INC-2016379657

PATIENT
  Age: 68 Year
  Sex: Female

DRUGS (2)
  1. NEURONTIN [Suspect]
     Active Substance: GABAPENTIN
     Indication: LIMB DISCOMFORT
     Dosage: 300 MG, 2X/DAY, ONE IN MORNING AND ONE AT NIGHT
     Route: 048
     Dates: start: 2015, end: 2016
  2. NEURONTIN [Suspect]
     Active Substance: GABAPENTIN
     Indication: NECK PAIN
     Dosage: 300 MG, 3X/DAY
     Route: 048
     Dates: start: 20151123, end: 20160808

REACTIONS (11)
  - Dry mouth [Not Recovered/Not Resolved]
  - Flatulence [Not Recovered/Not Resolved]
  - Peripheral swelling [Recovered/Resolved]
  - Abdominal distension [Not Recovered/Not Resolved]
  - Somnolence [Not Recovered/Not Resolved]
  - Weight increased [Not Recovered/Not Resolved]
  - Product use issue [Unknown]
  - Faeces discoloured [Not Recovered/Not Resolved]
  - Lymphoedema [Unknown]
  - Infection [Not Recovered/Not Resolved]
  - Fatigue [Not Recovered/Not Resolved]

NARRATIVE: CASE EVENT DATE: 2015
